FAERS Safety Report 5600435-5 (Version None)
Quarter: 2008Q1

REPORT INFORMATION
  Report Type: 
  Country: None (occurrence: None)
  Receive Date: 20080118
  Receipt Date: 20080110
  Transmission Date: 20080703
  Serious: Yes (Hospitalization)
  Sender: FDA-Public Use
  Company Number: 163-21880-07121141

PATIENT
  Age: 87 Year
  Sex: Female

DRUGS (12)
  1. REVLIMID [Suspect]
     Indication: MULTIPLE MYELOMA
     Dosage: 15 MG, 1 IN 1 D, ORAL
     Route: 048
     Dates: start: 20070701, end: 20071101
  2. DECADRON [Concomitant]
  3. FENTANYL (FENTANYL) (POULTICE OR PATCH) [Concomitant]
  4. GABAPENTIN [Concomitant]
  5. LISINOPRIL [Concomitant]
  6. METOPROLOL TARTRATE [Concomitant]
  7. ZOLOFT [Concomitant]
  8. SENNA (SENNA) [Concomitant]
  9. CALCIUM (CALCIUM) [Concomitant]
  10. VITAMIN D [Concomitant]
  11. MORPHINE [Concomitant]
  12. DOCUSATE (DOCUSATE) [Concomitant]

REACTIONS (3)
  - CERVICAL VERTEBRAL FRACTURE [None]
  - DRUG INTOLERANCE [None]
  - PATHOLOGICAL FRACTURE [None]
